FAERS Safety Report 4319766-4 (Version None)
Quarter: 2004Q1

REPORT INFORMATION
  Report Type: 
  Country: None (occurrence: None)
  Receive Date: 20040316
  Receipt Date: 20031025
  Transmission Date: 20041129
  Serious: Yes (Hospitalization, Other)
  Sender: FDA-Public Use
  Company Number: KII-2003-0007917

PATIENT
  Age: 79 Year
  Sex: Female

DRUGS (4)
  1. OXYCONTIN [Suspect]
     Indication: DRUG USE FOR UNKNOWN INDICATION
  2. THYROID HORMONES [Suspect]
     Indication: DRUG USE FOR UNKNOWN INDICATION
  3. HYCROCODONE W/ACETAMINOPHEN (PARACETAMOL, HYDROCODONE BITARTRATE) [Suspect]
     Indication: DRUG USE FOR UNKNOWN INDICATION
  4. WARFARIN SODIUM [Suspect]
     Indication: DRUG USE FOR UNKNOWN INDICATION

REACTIONS (9)
  - ACTIVATED PARTIAL THROMBOPLASTIN TIME PROLONGED [None]
  - BLOOD PRESSURE SYSTOLIC INCREASED [None]
  - DEPRESSED LEVEL OF CONSCIOUSNESS [None]
  - HAEMORRHAGE INTRACRANIAL [None]
  - INTERNATIONAL NORMALISED RATIO INCREASED [None]
  - LETHARGY [None]
  - NAUSEA [None]
  - RESPIRATORY DEPRESSION [None]
  - VOMITING [None]
